FAERS Safety Report 16385242 (Version 1)
Quarter: 2019Q2

REPORT INFORMATION
  Report Type: Spontaneous
  Country: US (occurrence: US)
  Receive Date: 20190603
  Receipt Date: 20190603
  Transmission Date: 20190711
  Serious: Yes (Hospitalization)
  Sender: FDA-Public Use
  Company Number: US-CELGENEUS-USA-20190509415

PATIENT
  Age: 55 Year
  Sex: Male
  Weight: 86.26 kg

DRUGS (1)
  1. THALOMID [Suspect]
     Active Substance: THALIDOMIDE
     Indication: KAPOSI^S SARCOMA
     Dosage: 100 MILLIGRAM
     Route: 048
     Dates: start: 201902

REACTIONS (1)
  - Bone disorder [Unknown]

NARRATIVE: CASE EVENT DATE: 201905
